FAERS Safety Report 24881924 (Version 1)
Quarter: 2025Q1

REPORT INFORMATION
  Report Type: Spontaneous
  Country: IN (occurrence: IN)
  Receive Date: 20250124
  Receipt Date: 20250124
  Transmission Date: 20250409
  Serious: Yes (Hospitalization)
  Sender: ROCHE
  Company Number: IN-ROCHE-3556746

PATIENT
  Age: 79 Year
  Sex: Female

DRUGS (1)
  1. TECENTRIQ [Suspect]
     Active Substance: ATEZOLIZUMAB
     Indication: Tumour thrombosis
     Route: 041
     Dates: start: 20240420

REACTIONS (6)
  - Off label use [Unknown]
  - Feeding disorder [Unknown]
  - Full blood count abnormal [Unknown]
  - Asthenia [Unknown]
  - Dyspnoea [Unknown]
  - Oxygen saturation decreased [Unknown]
